FAERS Safety Report 7705729-5 (Version None)
Quarter: 2011Q3

REPORT INFORMATION
  Report Type: 
  Country: None (occurrence: None)
  Receive Date: 20110824
  Receipt Date: 20110815
  Transmission Date: 20111222
  Serious: Yes (Other)
  Sender: FDA-Public Use
  Company Number: US-BAYER-201029654NA

PATIENT
  Age: 45 Year
  Sex: Female
  Weight: 55.782 kg

DRUGS (6)
  1. YASMIN [Suspect]
     Dosage: UNK
     Route: 048
     Dates: start: 20050526, end: 20080609
  2. ETODOLAC [Concomitant]
  3. TRAMADOL HCL [Concomitant]
  4. IBUROFEN [Concomitant]
  5. DROSPIRENONE AND ETHINYL ESTRADIOL [Suspect]
     Dosage: UNK
     Route: 048
     Dates: start: 20080731, end: 20100108
  6. PHENTERMINE [Concomitant]

REACTIONS (6)
  - NAUSEA [None]
  - CHOLECYSTITIS CHRONIC [None]
  - CHOLELITHIASIS [None]
  - GALLBLADDER DISORDER [None]
  - ABDOMINAL PAIN UPPER [None]
  - DIARRHOEA [None]
